FAERS Safety Report 17504997 (Version 1)
Quarter: 2020Q1

REPORT INFORMATION
  Report Type: Spontaneous
  Country: IT (occurrence: IT)
  Receive Date: 20200305
  Receipt Date: 20200305
  Transmission Date: 20200409
  Serious: Yes (Hospitalization)
  Sender: FDA-Public Use
  Company Number: NVSC2020IT062624

PATIENT
  Age: 39 Year
  Sex: Female

DRUGS (1)
  1. TEGRETOL [Suspect]
     Active Substance: CARBAMAZEPINE
     Indication: MANIA
     Dosage: 10 DF
     Route: 048
     Dates: start: 20191204, end: 20191204

REACTIONS (2)
  - Gait disturbance [Unknown]
  - Slow speech [Unknown]

NARRATIVE: CASE EVENT DATE: 20191204
